FAERS Safety Report 6166141-6 (Version None)
Quarter: 2009Q2

REPORT INFORMATION
  Report Type: 
  Country: None (occurrence: None)
  Receive Date: 20090422
  Receipt Date: 20090422
  Transmission Date: 20091009
  Serious: No
  Sender: FDA-Public Use
  Company Number: None

PATIENT
  Age: 81 Year
  Sex: Male
  Weight: 84 kg

DRUGS (1)
  1. AMIODARONE HCL [Suspect]
     Dosage: 200 MG EVERY DAY PO
     Route: 048
     Dates: start: 20070207, end: 20090127

REACTIONS (2)
  - BLOOD THYROID STIMULATING HORMONE ABNORMAL [None]
  - HYPERTHYROIDISM [None]
